FAERS Safety Report 7224869-0 (Version None)
Quarter: 2011Q1

REPORT INFORMATION
  Report Type: 
  Country: None (occurrence: None)
  Receive Date: 20110104
  Receipt Date: 20101220
  Transmission Date: 20110831
  Serious: Yes (Hospitalization)
  Sender: FDA-Public Use
  Company Number: 2010-4399

PATIENT
  Age: 50 Year
  Sex: Female

DRUGS (2)
  1. OTHER UNSPECIFIED MEDICATION (ALL OTHER THERAPEUTIC PRODUCTS) [Concomitant]
  2. SOMATULINE DEPOT [Suspect]
     Indication: ACROMEGALY
     Dosage: 120 MG (120 MG, 1 IN 4 WK), INTRAMUSCULAR
     Route: 030

REACTIONS (1)
  - DRUG INEFFECTIVE [None]
